FAERS Safety Report 7242555-8 (Version None)
Quarter: 2010Q4

REPORT INFORMATION
  Report Type: 
  Country: None (occurrence: None)
  Receive Date: 20101130
  Receipt Date: 20090724
  Transmission Date: 20110411
  Serious: Yes (Hospitalization)
  Sender: FDA-Public Use
  Company Number: 2009SP016968

PATIENT
  Age: 35 Year
  Sex: Female
  Weight: 117.9352 kg

DRUGS (8)
  1. NUVARING [Suspect]
     Indication: MENSTRUATION IRREGULAR
     Dosage: 1 DF; QM; VAG
     Route: 067
     Dates: start: 20061101, end: 20070501
  2. BENICAR [Concomitant]
  3. AZMACORT [Concomitant]
  4. METFORMIN [Concomitant]
  5. ZANTAC [Concomitant]
  6. RANITIDINE [Concomitant]
  7. IBUPROFEN [Concomitant]
  8. LIPITOR [Concomitant]

REACTIONS (9)
  - ASTHMA [None]
  - BRONCHITIS [None]
  - DEPRESSION [None]
  - DILATATION VENTRICULAR [None]
  - DYSPEPSIA [None]
  - DYSPHONIA [None]
  - INFECTION [None]
  - INSOMNIA [None]
  - PULMONARY EMBOLISM [None]
